FAERS Safety Report 13342074 (Version 3)
Quarter: 2017Q2

REPORT INFORMATION
  Report Type: Spontaneous
  Country: US (occurrence: US)
  Receive Date: 20170316
  Receipt Date: 20170517
  Transmission Date: 20170830
  Serious: Yes (Other)
  Sender: FDA-Public Use
  Company Number: US-009507513-1703USA002787

PATIENT
  Sex: Female
  Weight: 103.86 kg

DRUGS (14)
  1. MONTELUKAST SODIUM. [Concomitant]
     Active Substance: MONTELUKAST SODIUM
     Indication: HYPERSENSITIVITY
     Dosage: 10 MG BY MOUTH ONCE PER DAY
     Route: 048
     Dates: start: 2014
  2. ACETAMINOPHEN (+) HYDROCODONE BITARTRATE [Concomitant]
     Active Substance: ACETAMINOPHEN\HYDROCODONE BITARTRATE
     Indication: PAIN
     Dosage: ONE TABLET BY MOUTH TWICE DAILY AS NEEDED
     Route: 048
     Dates: start: 2015
  3. LYRICA [Suspect]
     Active Substance: PREGABALIN
     Indication: NEURALGIA
     Dosage: 50 MG CAPSULE BY MOUTH THREE TIMES A DAY
     Route: 048
     Dates: start: 2016, end: 2016
  4. LYRICA [Suspect]
     Active Substance: PREGABALIN
     Dosage: 150 MG THREE TIMES PER DAY
     Dates: start: 2016
  5. DILTIAZEM. [Concomitant]
     Active Substance: DILTIAZEM
     Indication: BLOOD PRESSURE MEASUREMENT
     Dosage: 180 MG BY MOUTH ONCE DAILY
     Route: 048
     Dates: start: 2014
  6. REMERON [Suspect]
     Active Substance: MIRTAZAPINE
     Indication: NEURALGIA
     Dosage: UNK
     Route: 048
     Dates: start: 2016
  7. GABAPENTIN. [Suspect]
     Active Substance: GABAPENTIN
     Dosage: UNK
     Dates: start: 2016, end: 2016
  8. NITROFURANTOIN. [Concomitant]
     Active Substance: NITROFURANTOIN
     Indication: KIDNEY INFECTION
     Dosage: 50 MG BY MOUTH PER DAY
     Route: 048
     Dates: start: 2014
  9. VENTOLIN HFA [Concomitant]
     Active Substance: ALBUTEROL SULFATE
     Indication: ASTHMA
     Dosage: 1 PUFF BY MOUTH EVERY 8 HOURS
     Route: 055
     Dates: start: 201612
  10. GABAPENTIN. [Suspect]
     Active Substance: GABAPENTIN
     Indication: NEURALGIA
     Dosage: 2200 MG PER DAY
     Dates: start: 2015, end: 2016
  11. PAROXETINE HYDROCHLORIDE. [Concomitant]
     Active Substance: PAROXETINE HYDROCHLORIDE
     Indication: DEPRESSION
     Dosage: 20 MG BY MOUTH ONCE DAILY
     Route: 048
     Dates: start: 2012
  12. TIZANIDINE HYDROCHLORIDE. [Concomitant]
     Active Substance: TIZANIDINE HYDROCHLORIDE
     Indication: MUSCLE SPASMS
     Dosage: 2 MG BY MOUTH EVERY 8 HOURS
     Route: 048
     Dates: start: 201702
  13. MONTELUKAST SODIUM. [Concomitant]
     Active Substance: MONTELUKAST SODIUM
     Indication: ASTHMA
  14. LEVOTHYROXINE SODIUM. [Concomitant]
     Active Substance: LEVOTHYROXINE SODIUM
     Indication: THYROID DISORDER
     Dosage: 25 MICROGRAM BY MOUTH ONCE DAILY
     Route: 048
     Dates: start: 2014

REACTIONS (3)
  - Cardiac failure [Unknown]
  - Pneumonia [Recovering/Resolving]
  - Peripheral swelling [Recovered/Resolved]

NARRATIVE: CASE EVENT DATE: 2016
